FAERS Safety Report 8255349-1 (Version None)
Quarter: 2012Q2

REPORT INFORMATION
  Report Type: 
  Country: None (occurrence: None)
  Receive Date: 20120403
  Receipt Date: 20120329
  Transmission Date: 20120825
  Serious: Yes (Hospitalization)
  Sender: FDA-Public Use
  Company Number: JP-JNJFOC-20120309027

PATIENT
  Age: 66 Year
  Sex: Male

DRUGS (8)
  1. RISPERDAL [Suspect]
     Route: 048
  2. RISPERDAL [Suspect]
     Route: 048
  3. QUETIAPINE [Suspect]
     Indication: AGGRESSION
     Route: 065
  4. LEVOMEPROMAZINE [Suspect]
     Indication: AGGRESSION
     Route: 065
  5. RISPERDAL [Suspect]
     Indication: AGGRESSION
     Route: 048
  6. RISPERDAL [Suspect]
     Indication: INSOMNIA
     Route: 048
  7. QUETIAPINE [Suspect]
     Indication: INSOMNIA
     Route: 065
  8. LEVOMEPROMAZINE [Suspect]
     Indication: INSOMNIA
     Route: 065

REACTIONS (8)
  - FEELING ABNORMAL [None]
  - TORTICOLLIS [None]
  - BRADYPHRENIA [None]
  - OPISTHOTONUS [None]
  - FALL [None]
  - COMMUNICATION DISORDER [None]
  - DYSKINESIA [None]
  - DRUG INEFFECTIVE [None]
